FAERS Safety Report 14973717 (Version 1)
Quarter: 2018Q2

REPORT INFORMATION
  Report Type: Spontaneous
  Country: US (occurrence: US)
  Receive Date: 20180605
  Receipt Date: 20180605
  Transmission Date: 20180711
  Serious: Yes (Other)
  Sender: FDA-Public Use
  Company Number: US-SA-2018SA145792

PATIENT
  Age: 33 Year
  Sex: Female
  Weight: 47.17 kg

DRUGS (15)
  1. MULTIVITAMINS [VITAMINS NOS] [Concomitant]
     Dosage: 1 DF, QD
     Route: 048
     Dates: start: 20160428
  2. TYLENOL [Concomitant]
     Active Substance: ACETAMINOPHEN
     Dosage: 1 DF, QD
     Route: 048
     Dates: start: 20160428
  3. SODIUM CHLORIDE. [Concomitant]
     Active Substance: SODIUM CHLORIDE
     Dosage: 0.9 %
     Dates: start: 20160712
  4. AUGMENTIN BID [Concomitant]
     Dosage: 1 DF, BID
     Route: 048
     Dates: start: 20171020
  5. METHADONE [Concomitant]
     Active Substance: METHADONE HYDROCHLORIDE
     Dosage: 1 DF, BID
     Route: 048
     Dates: start: 20170411
  6. VITAMIN C [ASCORBIC ACID] [Concomitant]
     Dosage: 1 DF, QD
     Route: 048
     Dates: start: 20160428
  7. STERILE WATER [Concomitant]
     Active Substance: WATER
     Dosage: UNK
     Route: 042
     Dates: start: 20160712
  8. DOXYCYCLINE. [Concomitant]
     Active Substance: DOXYCYCLINE
     Dosage: 1 DF, Q12H
     Route: 048
     Dates: start: 20161003
  9. IMIGLUCERASE [Suspect]
     Active Substance: IMIGLUCERASE
     Indication: LIPIDOSIS
     Dosage: 76.31 MG/KG, QOW
     Route: 041
     Dates: start: 19940728
  10. EPINEPHRINE. [Concomitant]
     Active Substance: EPINEPHRINE
     Indication: ANAPHYLACTIC REACTION
     Dosage: 0.3 MG, PRN
     Route: 030
  11. GABAPENTIN. [Concomitant]
     Active Substance: GABAPENTIN
     Dosage: 1 DF, TID
     Route: 048
     Dates: start: 20170104
  12. FAMOTIDINE. [Concomitant]
     Active Substance: FAMOTIDINE
     Dosage: 10 MG, 1 OR 2 TIMES DAILY
     Route: 048
     Dates: start: 20170101
  13. NORMAL SALINE [Concomitant]
     Active Substance: SODIUM CHLORIDE
     Dosage: 0.9%
     Route: 042
     Dates: start: 20160712
  14. CEPHALEXINE [Concomitant]
     Active Substance: CEPHALEXIN
     Dosage: 1 DF, BID
     Dates: start: 20170430
  15. OXYBUTYNIN. [Concomitant]
     Active Substance: OXYBUTYNIN CHLORIDE
     Dosage: 1 DF, BID
     Route: 048
     Dates: start: 20170406

REACTIONS (2)
  - Osteomyelitis [Not Recovered/Not Resolved]
  - Nasopharyngitis [Unknown]

NARRATIVE: CASE EVENT DATE: 201805
